FAERS Safety Report 6886299-0 (Version None)
Quarter: 2010Q3

REPORT INFORMATION
  Report Type: 
  Country: None (occurrence: None)
  Receive Date: 20100729
  Receipt Date: 20090416
  Transmission Date: 20110219
  Serious: Yes (Other)
  Sender: FDA-Public Use
  Company Number: US-PFIZER INC-2009167207

PATIENT
  Sex: Male
  Weight: 63.502 kg

DRUGS (7)
  1. CELEBREX [Suspect]
     Indication: FOOT FRACTURE
     Dosage: 200 MG, 1X/DAY
     Dates: start: 20090203, end: 20090207
  2. ACETYLSALICYLIC ACID [Concomitant]
     Dosage: UNK
  3. LISINOPRIL [Concomitant]
     Dosage: UNK
  4. CARVEDILOL [Concomitant]
     Dosage: UNK
  5. CLARITIN [Concomitant]
     Dosage: UNK
  6. NASONEX [Concomitant]
     Dosage: UNK
  7. MULTI-VITAMINS [Concomitant]
     Dosage: UNK

REACTIONS (3)
  - BLOOD PRESSURE INCREASED [None]
  - PRURITUS [None]
  - RASH [None]
